FAERS Safety Report 23320988 (Version 1)
Quarter: 2023Q4

REPORT INFORMATION
  Report Type: Spontaneous
  Country: US (occurrence: US)
  Receive Date: 20231220
  Receipt Date: 20231220
  Transmission Date: 20240109
  Serious: No
  Sender: FDA-Public Use
  Company Number: US-GSKCCFUS-Case-01830591_AE-102332

PATIENT
  Sex: Female

DRUGS (1)
  1. BREXAFEMME [Suspect]
     Active Substance: IBREXAFUNGERP CITRATE
     Indication: Product used for unknown indication
     Dosage: UNK
     Dates: start: 202308

REACTIONS (2)
  - Product dispensing error [Unknown]
  - Recalled product administered [Unknown]
